FAERS Safety Report 6589616-4 (Version None)
Quarter: 2010Q1

REPORT INFORMATION
  Report Type: 
  Country: None (occurrence: None)
  Receive Date: 20100212
  Receipt Date: 20100127
  Transmission Date: 20100710
  Serious: Yes (Hospitalization)
  Sender: FDA-Public Use
  Company Number: A-NJ2010-33162

PATIENT
  Age: 48 Year
  Sex: Female

DRUGS (3)
  1. TRACLEER [Suspect]
     Indication: PULMONARY ARTERIAL HYPERTENSION
     Dosage: 125 MG, BID, ORAL
     Route: 048
     Dates: start: 20020118
  2. METHOTREXATE [Concomitant]
  3. PLAQUENIL [Concomitant]

REACTIONS (3)
  - ACCIDENT AT WORK [None]
  - BACK INJURY [None]
  - FALL [None]
